FAERS Safety Report 8252060-8 (Version None)
Quarter: 2012Q2

REPORT INFORMATION
  Report Type: 
  Country: None (occurrence: None)
  Receive Date: 20120402
  Receipt Date: 20110303
  Transmission Date: 20120825
  Serious: No
  Sender: FDA-Public Use
  Company Number: US-ABBOTT-11P-163-0804238-00

PATIENT
  Sex: Male
  Weight: 75 kg

DRUGS (11)
  1. ACETYLSALICYLIC ACID [Concomitant]
     Indication: PRODUCT USED FOR UNKNOWN INDICATION
     Dosage: DAILY DOSE: 81 MILLIGRAM(S)
     Route: 065
  2. ASCORBIC ACID [Concomitant]
     Indication: PRODUCT USED FOR UNKNOWN INDICATION
     Dosage: DAILY DOSE: 1000 MILLIGRAM(S)
     Route: 065
  3. TESTOSTERONE [Suspect]
     Indication: BLOOD TESTOSTERONE DECREASED
     Dosage: DAILY DOSE: 7.5 GRAM(S), VIA PUMP
     Route: 062
     Dates: start: 20100101
  4. FOLIC ACID [Concomitant]
     Indication: PRODUCT USED FOR UNKNOWN INDICATION
     Dosage: DAILY DOSE: 800 MICROGRAM(S)
     Route: 065
  5. ERGOCALCIFEROL [Concomitant]
     Indication: PRODUCT USED FOR UNKNOWN INDICATION
     Dosage: DAILY DOSE: 1000 INTERNATIONAL UNIT(S)
     Route: 065
  6. SIMVASTATIN [Concomitant]
     Indication: BLOOD CHOLESTEROL INCREASED
     Dosage: DAILY DOSE: 20 MILLIGRAM(S)
     Route: 065
  7. PANTOPRAZOLE SODIUM [Concomitant]
     Indication: GASTROOESOPHAGEAL REFLUX DISEASE
     Dosage: DAILY DOSE: 40 MILLIGRAM(S)
     Route: 065
  8. ASCORBIC ACID AND CALCIUM AND MINERALS NOS AND RETINOL AND TOCOPHERYL [Concomitant]
     Indication: PRODUCT USED FOR UNKNOWN INDICATION
     Dosage: DAILY DOSE:  UNKNOWN, FREQUENCY: ONCE A DAY
     Route: 065
  9. TYLENOL PM [Concomitant]
     Indication: PRODUCT USED FOR UNKNOWN INDICATION
     Dosage: DAILY DOSE:  UNKNOWN
     Route: 065
  10. LOSARTAN [Concomitant]
     Indication: HYPERTENSION
     Dosage: DAILY DOSE: 50 MILLIGRAM(S)
     Route: 065
  11. LEVOTHYROXINE [Concomitant]
     Indication: HYPOTHYROIDISM
     Dosage: DAILY DOSE: 50 MICROGRAM(S)
     Route: 065

REACTIONS (1)
  - ALOPECIA [None]
